FAERS Safety Report 6576214-1 (Version None)
Quarter: 2010Q1

REPORT INFORMATION
  Report Type: 
  Country: None (occurrence: None)
  Receive Date: 20100209
  Receipt Date: 20100202
  Transmission Date: 20100710
  Serious: Yes (Other)
  Sender: FDA-Public Use
  Company Number: US-ALLERGAN-0917790US

PATIENT
  Age: 61 Year
  Weight: 62.132 kg

DRUGS (1)
  1. BOTOX COSMETIC [Suspect]
     Indication: SKIN WRINKLING
     Dosage: UNK
     Dates: start: 20090609, end: 20090609

REACTIONS (6)
  - ASTHENIA [None]
  - COUGH [None]
  - DYSPHAGIA [None]
  - NASOPHARYNGITIS [None]
  - OROPHARYNGEAL PAIN [None]
  - SPEECH DISORDER [None]
